FAERS Safety Report 12433473 (Version 5)
Quarter: 2017Q2

REPORT INFORMATION
  Report Type: Spontaneous
  Country: KR (occurrence: KR)
  Receive Date: 20160603
  Receipt Date: 20170605
  Transmission Date: 20170830
  Serious: Yes (Death, Other)
  Sender: FDA-Public Use
  Company Number: KR-009507513-1605KOR012808

PATIENT
  Age: 24 Year
  Sex: Male

DRUGS (1)
  1. PROPECIA [Suspect]
     Active Substance: FINASTERIDE
     Indication: ALOPECIA
     Dosage: 1 MG, QD
     Route: 048
     Dates: start: 20120315, end: 20130930

REACTIONS (55)
  - Anxiety [Not Recovered/Not Resolved]
  - Disturbance in attention [Not Recovered/Not Resolved]
  - Weight decreased [Unknown]
  - Disorientation [Not Recovered/Not Resolved]
  - Urticaria [Unknown]
  - Urticaria [Unknown]
  - Laryngitis [Unknown]
  - Pharyngitis [Unknown]
  - Bronchitis [Unknown]
  - Abscess [Unknown]
  - Depression [Not Recovered/Not Resolved]
  - Psychomotor retardation [Not Recovered/Not Resolved]
  - Decreased appetite [Not Recovered/Not Resolved]
  - Prostatitis [Unknown]
  - Vomiting [Unknown]
  - Dermatitis contact [Unknown]
  - Psychiatric symptom [Not Recovered/Not Resolved]
  - Insomnia [Not Recovered/Not Resolved]
  - Speech disorder [Unknown]
  - Pruritus [Unknown]
  - Pruritus [Unknown]
  - Pharyngitis [Unknown]
  - Dermatitis atopic [Unknown]
  - Headache [Unknown]
  - Bipolar disorder [Not Recovered/Not Resolved]
  - Completed suicide [Fatal]
  - Major depression [Not Recovered/Not Resolved]
  - Semen volume decreased [Not Recovered/Not Resolved]
  - Urticaria [Unknown]
  - Urticaria [Unknown]
  - Subcutaneous abscess [Unknown]
  - Panic disorder [Unknown]
  - Bladder dysfunction [Unknown]
  - Chest pain [Unknown]
  - Fatigue [Not Recovered/Not Resolved]
  - Limb injury [Unknown]
  - Diabetes mellitus [Not Recovered/Not Resolved]
  - Sexual dysfunction [Not Recovered/Not Resolved]
  - Libido decreased [Not Recovered/Not Resolved]
  - Erectile dysfunction [Not Recovered/Not Resolved]
  - Upper respiratory tract infection [Unknown]
  - Subcutaneous abscess [Unknown]
  - Laryngeal disorder [Unknown]
  - Tonsillitis [Unknown]
  - Bacterial infection [Unknown]
  - Amnesia [Not Recovered/Not Resolved]
  - Decreased interest [Not Recovered/Not Resolved]
  - Lethargy [Unknown]
  - Personality change [Not Recovered/Not Resolved]
  - Memory impairment [Not Recovered/Not Resolved]
  - Laryngitis [Unknown]
  - Rhinitis allergic [Unknown]
  - Rhinitis allergic [Unknown]
  - Subcutaneous abscess [Unknown]
  - Cognitive disorder [Not Recovered/Not Resolved]

NARRATIVE: CASE EVENT DATE: 20120402
